FAERS Safety Report 8196895-9 (Version None)
Quarter: 2012Q1

REPORT INFORMATION
  Report Type: 
  Country: None (occurrence: None)
  Receive Date: 20120309
  Receipt Date: 20120302
  Transmission Date: 20120608
  Serious: Yes (Hospitalization)
  Sender: FDA-Public Use
  Company Number: JP-NOVOPROD-346316

PATIENT
  Age: 44 Year
  Sex: Male
  Weight: 97 kg

DRUGS (4)
  1. VICTOZA [Suspect]
     Indication: DIABETES MELLITUS
     Dosage: 0.9 MG, QD
     Route: 058
     Dates: start: 20110804
  2. AMARYL [Concomitant]
     Dosage: 0.5 MG, QD
     Route: 048
     Dates: start: 20090504
  3. LAXOBERON [Concomitant]
     Dates: start: 20090504
  4. ALLOPURINOL [Concomitant]
     Dosage: 200 MG, QD
     Route: 048
     Dates: start: 20090504

REACTIONS (1)
  - ACUTE MYOCARDIAL INFARCTION [None]
